FAERS Safety Report 4866927-1 (Version None)
Quarter: 2005Q4

REPORT INFORMATION
  Report Type: 
  Country: None (occurrence: None)
  Receive Date: 20051222
  Receipt Date: 20051212
  Transmission Date: 20060501
  Serious: Yes (Life-Threatening)
  Sender: FDA-Public Use
  Company Number: 2005156931

PATIENT
  Age: 32 Year
  Sex: Female
  Weight: 60 kg

DRUGS (7)
  1. MYCOBUTIN [Suspect]
     Indication: MYCOBACTERIAL INFECTION
     Dosage: 600 MG (150 MG, 2 IN 2 D), ORAL
     Route: 048
     Dates: start: 20050101, end: 20051114
  2. ALEXAN (CYTARABINE) [Concomitant]
  3. ORGAMETRIL (LYNESTRENOL) [Concomitant]
  4. KLACID (CLARITHROMYCIN) [Concomitant]
  5. CIPROXIN (CIPROFLOXACIN) [Concomitant]
  6. ZOVIRAX [Concomitant]
  7. PANTOLOC ^BYK^ (PANTOPRAZOLE SODIUM) [Concomitant]

REACTIONS (4)
  - ANAEMIA [None]
  - BONE MARROW DISORDER [None]
  - ERYTHROPOIESIS ABNORMAL [None]
  - WHITE BLOOD CELL MORPHOLOGY ABNORMAL [None]
